FAERS Safety Report 18983017 (Version 2)
Quarter: 2021Q3

REPORT INFORMATION
  Report Type: Report from Study
  Country: US (occurrence: US)
  Receive Date: 20210308
  Receipt Date: 20210727
  Transmission Date: 20211014
  Serious: Yes (Hospitalization)
  Sender: FDA-Public Use
  Company Number: US-B.I. PHARMACEUTICALS,INC./RIDGEFIELD-2020-BI-066370

PATIENT
  Sex: Female

DRUGS (1)
  1. OFEV [Suspect]
     Active Substance: NINTEDANIB
     Indication: IDIOPATHIC PULMONARY FIBROSIS
     Dosage: OFEV DOSE 150MG DAILY
     Route: 048
     Dates: start: 20190405

REACTIONS (6)
  - Product package associated injury [Unknown]
  - Memory impairment [Unknown]
  - Product quality issue [Unknown]
  - Device leakage [Unknown]
  - Pain [Unknown]
  - Intentional dose omission [Unknown]
